FAERS Safety Report 6295497-9 (Version None)
Quarter: 2009Q3

REPORT INFORMATION
  Report Type: 
  Country: None (occurrence: None)
  Receive Date: 20090803
  Receipt Date: 20090727
  Transmission Date: 20100115
  Serious: Yes (Life-Threatening, Hospitalization)
  Sender: FDA-Public Use
  Company Number: FR-MERCK-0907FRA00096

PATIENT
  Age: 62 Year
  Sex: Male

DRUGS (1)
  1. SINGULAIR [Suspect]
     Indication: ASTHMA
     Route: 048
     Dates: start: 20060101, end: 20090601

REACTIONS (4)
  - ALLERGIC GRANULOMATOUS ANGIITIS [None]
  - EOSINOPHILIA [None]
  - PARAESTHESIA [None]
  - RHEUMATOID FACTOR POSITIVE [None]
